FAERS Safety Report 8608577 (Version 2)
Quarter: 2014Q3

REPORT INFORMATION
  Report Type: Spontaneous
  Country: US (occurrence: US)
  Receive Date: 20120611
  Receipt Date: 20140709
  Transmission Date: 20150326
  Serious: Yes (Hospitalization)
  Sender: FDA-Public Use
  Company Number: US-GLAXOSMITHKLINE-A0887157A

PATIENT
  Sex: Female

DRUGS (1)
  1. AVANDIA [Suspect]
     Active Substance: ROSIGLITAZONE MALEATE
     Indication: DIABETES MELLITUS
     Dosage: 4MG PER DAY
     Route: 048
     Dates: start: 20040115, end: 20061210

REACTIONS (7)
  - Coronary artery embolism [Unknown]
  - Cerebrovascular accident [Not Recovered/Not Resolved]
  - Deep vein thrombosis [Unknown]
  - Cardiomegaly [Unknown]
  - Pulmonary embolism [Unknown]
  - Vena cava filter insertion [Unknown]
  - Paraparesis [Unknown]
